FAERS Safety Report 10242853 (Version 1)
Quarter: 2014Q2

REPORT INFORMATION
  Report Type: Spontaneous
  Country: IT (occurrence: IT)
  Receive Date: 20140618
  Receipt Date: 20140618
  Transmission Date: 20141212
  Serious: No
  Sender: FDA-Public Use
  Company Number: IT-UCBSA-2014001843

PATIENT
  Age: 71 Year
  Sex: Female

DRUGS (7)
  1. KEPPRA [Suspect]
     Indication: EPILEPSY
     Dosage: 1000 MG, ONCE DAILY (QD)
     Route: 048
     Dates: start: 20140426, end: 20140526
  2. IGROTON [Concomitant]
     Dosage: 25 MG, UNK
     Route: 048
  3. ANSIOLIN [Concomitant]
     Dosage: 20 DROPS
     Route: 048
  4. HUMALOG [Concomitant]
     Dosage: 20 IU
     Route: 058
  5. SERETIDE [Concomitant]
     Dosage: 4 DF, UNK
     Route: 045
  6. SPIRIVA [Concomitant]
     Dosage: 1 DF, 18 MCG HARD CAPSULES
     Route: 045
  7. PANTOPRAZOLE SODIUM [Concomitant]
     Dosage: 40 MG, UNK
     Route: 048

REACTIONS (1)
  - Thrombocytopenia [Recovered/Resolved]
